FAERS Safety Report 17798029 (Version 1)
Quarter: 2020Q2

REPORT INFORMATION
  Report Type: Spontaneous
  Country: US (occurrence: US)
  Receive Date: 20200516
  Receipt Date: 20200516
  Transmission Date: 20200714
  Serious: Yes (Disabling)
  Sender: FDA-Public Use
  Company Number: None

PATIENT
  Age: 54 Year
  Weight: 53.55 kg

DRUGS (2)
  1. OXYCODONE [Suspect]
     Active Substance: OXYCODONE
     Indication: PAIN
     Route: 048
  2. BELBUCA [Suspect]
     Active Substance: BUPRENORPHINE HYDROCHLORIDE
     Indication: PAIN
     Dosage: ?          QUANTITY:1 PATCH(ES);?
     Route: 048

REACTIONS (13)
  - Foot fracture [None]
  - Insomnia [None]
  - Tremor [None]
  - Dyskinesia [None]
  - Therapy non-responder [None]
  - Hypertension [None]
  - Sensory disturbance [None]
  - Opiates negative [None]
  - Drop attacks [None]
  - Visual impairment [None]
  - Muscle spasms [None]
  - Constipation [None]
  - Pain [None]
